FAERS Safety Report 13029591 (Version 1)
Quarter: 2016Q4

REPORT INFORMATION
  Report Type: Spontaneous
  Country: US (occurrence: US)
  Receive Date: 20161212
  Receipt Date: 20161212
  Transmission Date: 20170207
  Serious: Yes (Death)
  Sender: FDA-Public Use
  Company Number: None

PATIENT
  Age: 64 Year
  Sex: Female

DRUGS (1)
  1. IBRANCE [Suspect]
     Active Substance: PALBOCICLIB
     Indication: BREAST CANCER
     Dosage: IBRANCE 125 MG 1 CAPSULE DAILY FOR 21 DAYS, THEN 7 DAYS OFF ORAL
     Route: 048
     Dates: start: 20160913, end: 20161122

REACTIONS (1)
  - Death [None]

NARRATIVE: CASE EVENT DATE: 20161122
